FAERS Safety Report 4283789-4 (Version None)
Quarter: 2004Q1

REPORT INFORMATION
  Report Type: 
  Country: None (occurrence: None)
  Receive Date: 20040115
  Receipt Date: 20030221
  Transmission Date: 20041129
  Serious: Yes (Hospitalization)
  Sender: FDA-Public Use
  Company Number: NSADSS2002041241

PATIENT
  Age: 51 Year
  Sex: Female

DRUGS (3)
  1. DOXIL [Suspect]
     Indication: OVARIAN CANCER
     Dosage: 68 MG, 1 IN 28 DAY, INTRAVENOUS DRIP
     Route: 041
     Dates: start: 20010314, end: 20010411
  2. PREVACID [Concomitant]
  3. PEPCID [Concomitant]

REACTIONS (4)
  - CHEST PAIN [None]
  - DYSPHAGIA [None]
  - OESOPHAGEAL ULCER [None]
  - OESOPHAGITIS [None]
